APPROVED DRUG PRODUCT: APREMILAST
Active Ingredient: APREMILAST
Strength: 10MG
Dosage Form/Route: TABLET;ORAL
Application: A211761 | Product #001 | TE Code: AB
Applicant: ALKEM LABORATORIES LTD
Approved: Sep 21, 2021 | RLD: No | RS: No | Type: RX